FAERS Safety Report 9372351 (Version 1)
Quarter: 2013Q2

REPORT INFORMATION
  Report Type: Spontaneous
  Country: US (occurrence: US)
  Receive Date: 20130627
  Receipt Date: 20130627
  Transmission Date: 20140414
  Serious: Yes (Other)
  Sender: FDA-Public Use
  Company Number: US-AMGEN-USASP2013044898

PATIENT
  Age: 60 Year
  Sex: Female

DRUGS (9)
  1. PROLIA [Suspect]
     Indication: OSTEOPOROSIS POSTMENOPAUSAL
  2. NIACIN [Concomitant]
     Dosage: 500 MG, QD
  3. SERTRALINE [Concomitant]
     Dosage: 100 MG, QD
  4. LISINOPRIL [Concomitant]
     Dosage: 20 MG, QD
  5. ATENOLOL [Concomitant]
     Dosage: 25 MG, QD
  6. ASPIRIN [Concomitant]
     Dosage: 352 MG, QD
  7. PREDNISONE [Concomitant]
     Dosage: 5 MG, QD
  8. SIMVASTATIN [Concomitant]
     Dosage: 20 MG, UNK
  9. GABAPENTIN [Concomitant]
     Dosage: 600 MG, UNK

REACTIONS (2)
  - Intervertebral disc protrusion [Unknown]
  - Exostosis [Unknown]
